FAERS Safety Report 10110208 (Version 2)
Quarter: 2014Q2

REPORT INFORMATION
  Report Type: Spontaneous
  Country: US (occurrence: US)
  Receive Date: 20140425
  Receipt Date: 20140516
  Transmission Date: 20141212
  Serious: No
  Sender: FDA-Public Use
  Company Number: US-BAYER-2014-060295

PATIENT
  Age: 70 Year
  Sex: Female
  Weight: 107.48 kg

DRUGS (9)
  1. ALEVE TABLET [Suspect]
     Indication: ARTHRITIS
     Dosage: 2 DF, PRN
     Route: 048
  2. OMEPRAZOLE [Concomitant]
  3. MELOXICAM [Concomitant]
  4. DOXYCYCLINE [Concomitant]
  5. VITAMIN D [Concomitant]
  6. COQ10 [Concomitant]
  7. HYDROCODONE [Concomitant]
     Indication: PAIN
     Dosage: UNK UNK, PRN
  8. ZYRTEC [Concomitant]
  9. TYLENOL [PARACETAMOL] [Concomitant]
     Indication: PAIN

REACTIONS (1)
  - Drug ineffective [None]
